FAERS Safety Report 7416215-4 (Version None)
Quarter: 2011Q2

REPORT INFORMATION
  Report Type: 
  Country: None (occurrence: None)
  Receive Date: 20110414
  Receipt Date: 20110404
  Transmission Date: 20111010
  Serious: Yes (Other)
  Sender: FDA-Public Use
  Company Number: FR-ACTELION-A-CH2011-47142

PATIENT
  Age: 2 Year
  Sex: Female

DRUGS (3)
  1. TRACLEER [Suspect]
     Indication: PULMONARY ARTERIAL HYPERTENSION
     Route: 048
  2. SILDENAFIL [Concomitant]
  3. TREPROSTINIL [Concomitant]

REACTIONS (3)
  - HAEMORRHAGE [None]
  - SURGICAL PROCEDURE REPEATED [None]
  - VARICES OESOPHAGEAL [None]
